FAERS Safety Report 9496400 (Version 2)
Quarter: 2013Q3

REPORT INFORMATION
  Report Type: Spontaneous
  Country: US (occurrence: US)
  Receive Date: 20130904
  Receipt Date: 20130904
  Transmission Date: 20140515
  Serious: Yes (Hospitalization)
  Sender: FDA-Public Use
  Company Number: US-JNJFOC-ALZ-12582

PATIENT
  Age: 63 Year
  Sex: Female

DRUGS (4)
  1. ELMIRON (PENTOSAN POLYSULFATE SODIUM) [Suspect]
     Indication: CYSTITIS INTERSTITIAL
     Route: 048
  2. CORTICOSTEROID NOS [Suspect]
     Indication: PRODUCT USED FOR UNKNOWN INDICATION
     Route: 008
  3. NEURONTIN [Concomitant]
     Indication: PRODUCT USED FOR UNKNOWN INDICATION
  4. ELAVIL [Concomitant]
     Indication: PRODUCT USED FOR UNKNOWN INDICATION

REACTIONS (3)
  - Extradural haematoma [Recovered/Resolved]
  - Back pain [Recovered/Resolved]
  - Hypoaesthesia [Recovered/Resolved]
